FAERS Safety Report 9660886 (Version 1)
Quarter: 2013Q4

REPORT INFORMATION
  Report Type: Spontaneous
  Country: NO (occurrence: NO)
  Receive Date: 20131031
  Receipt Date: 20131031
  Transmission Date: 20140711
  Serious: Yes (Disabling)
  Sender: FDA-Public Use
  Company Number: NO-PFIZER INC-2013310334

PATIENT
  Age: 57 Year
  Sex: Male

DRUGS (4)
  1. TRIATEC [Suspect]
     Indication: MYOCARDIAL INFARCTION
     Dosage: 5 MG, 2X/DAY
     Route: 048
  2. TEGRETOL [Concomitant]
     Dosage: UNK
  3. LIPITOR [Concomitant]
     Dosage: UNK
  4. ALBYL-E [Concomitant]
     Dosage: UNK

REACTIONS (1)
  - Erectile dysfunction [Not Recovered/Not Resolved]
